FAERS Safety Report 25896620 (Version 1)
Quarter: 2025Q4

REPORT INFORMATION
  Report Type: Spontaneous
  Country: EU (occurrence: EU)
  Receive Date: 20251008
  Receipt Date: 20251008
  Transmission Date: 20260118
  Serious: Yes (Other)
  Sender: BAYER HEALTHCARE LLC
  Company Number: None

PATIENT
  Age: 62 Year
  Sex: Female

DRUGS (1)
  1. LORATADINE\PSEUDOEPHEDRINE SULFATE [Suspect]
     Active Substance: LORATADINE\PSEUDOEPHEDRINE SULFATE
     Dates: start: 20250911

REACTIONS (2)
  - Insomnia [Unknown]
  - Heart rate increased [Unknown]

NARRATIVE: CASE EVENT DATE: 20250911
